FAERS Safety Report 23107504 (Version 1)
Quarter: 2023Q4

REPORT INFORMATION
  Report Type: Spontaneous
  Country: US (occurrence: US)
  Receive Date: 20231026
  Receipt Date: 20231026
  Transmission Date: 20240109
  Serious: Yes (Hospitalization, Other)
  Sender: FDA-Public Use
  Company Number: US-AMNEAL PHARMACEUTICALS-2023-AMRX-01059

PATIENT
  Age: 65 Year
  Sex: Female
  Weight: 99.3 kg

DRUGS (6)
  1. PROGESTERONE [Suspect]
     Active Substance: PROGESTERONE
     Indication: Menopausal symptoms
     Dosage: 100 MILLIGRAM, QD
     Route: 048
     Dates: start: 2010, end: 20201105
  2. ESTROGENS [Suspect]
     Active Substance: ESTROGENS
     Indication: Menopausal symptoms
     Dosage: 37.5 MICROGRAM, QD
     Route: 062
     Dates: start: 2010, end: 20201105
  3. IMITREX [Concomitant]
     Active Substance: SUMATRIPTAN SUCCINATE
     Indication: Migraine
     Dosage: UNK
     Dates: start: 2005
  4. ALEVE [Concomitant]
     Active Substance: NAPROXEN SODIUM
     Indication: Injection site pain
     Dosage: UNK
     Dates: start: 202008, end: 202008
  5. ALEVE [Concomitant]
     Active Substance: NAPROXEN SODIUM
     Indication: Headache
  6. TYLENOL [Concomitant]
     Active Substance: ACETAMINOPHEN
     Indication: Injection site pain
     Dosage: UNK
     Dates: start: 202008, end: 202008

REACTIONS (1)
  - Pulmonary embolism [Recovered/Resolved]

NARRATIVE: CASE EVENT DATE: 20201030
